FAERS Safety Report 4548508-2 (Version None)
Quarter: 2005Q1

REPORT INFORMATION
  Report Type: 
  Country: None (occurrence: None)
  Receive Date: 20050110
  Receipt Date: 20041230
  Transmission Date: 20050727
  Serious: Yes (Hospitalization, Other)
  Sender: FDA-Public Use
  Company Number: FR-GLAXOSMITHKLINE-B0363252A

PATIENT
  Sex: Male
  Weight: 2.8 kg

DRUGS (3)
  1. RETROVIR [Suspect]
     Indication: ANTIVIRAL PROPHYLAXIS
     Route: 042
  2. RETROVIR [Suspect]
     Dosage: 2MGK FOUR TIMES PER DAY
     Route: 048
  3. UNKNOWN ANTIRETROVIRAL TREATMENT [Suspect]
     Indication: HIV INFECTION

REACTIONS (3)
  - DRUG EXPOSURE DURING PREGNANCY [None]
  - DRUG LEVEL INCREASED [None]
  - PREMATURE BABY [None]
